FAERS Safety Report 20354552 (Version 1)
Quarter: 2022Q1

REPORT INFORMATION
  Report Type: Spontaneous
  Country: FR (occurrence: FR)
  Receive Date: 20220120
  Receipt Date: 20220120
  Transmission Date: 20220424
  Serious: Yes (Congenital Anomaly, Other)
  Sender: FDA-Public Use
  Company Number: FR-ABBVIE-22K-056-4239520-00

PATIENT
  Sex: Male

DRUGS (1)
  1. VALPROATE SODIUM [Suspect]
     Active Substance: VALPROATE SODIUM
     Indication: Maternal exposure timing unspecified
     Route: 064

REACTIONS (12)
  - Pyelocaliectasis [Unknown]
  - Craniosynostosis [Unknown]
  - Camptodactyly congenital [Unknown]
  - Intellectual disability [Unknown]
  - Psychomotor retardation [Unknown]
  - Language disorder [Unknown]
  - Dysmorphism [Unknown]
  - Enuresis [Recovered/Resolved]
  - Behaviour disorder [Unknown]
  - Autism spectrum disorder [Unknown]
  - Developmental delay [Unknown]
  - Foetal exposure during pregnancy [Unknown]
